FAERS Safety Report 21164817 (Version 1)
Quarter: 2022Q3

REPORT INFORMATION
  Report Type: Spontaneous
  Country: US (occurrence: None)
  Receive Date: 20220803
  Receipt Date: 20220803
  Transmission Date: 20221026
  Serious: No
  Sender: FDA-Public Use
  Company Number: US-VistaPharm, Inc.-VER202109-001954

PATIENT
  Sex: Female

DRUGS (1)
  1. NYSTATIN [Suspect]
     Active Substance: NYSTATIN
     Indication: Candida infection
     Dosage: UNKNOWN
     Route: 048

REACTIONS (2)
  - Oral discomfort [Not Recovered/Not Resolved]
  - Therapeutic product effect incomplete [Unknown]
